FAERS Safety Report 4265808-4 (Version None)
Quarter: 2004Q1

REPORT INFORMATION
  Report Type: 
  Country: None (occurrence: None)
  Receive Date: 20040107
  Receipt Date: 20040107
  Transmission Date: 20041129
  Serious: Yes (Disabling)
  Sender: FDA-Public Use
  Company Number: None

PATIENT
  Age: 50 Year
  Sex: Male
  Weight: 124.7392 kg

DRUGS (2)
  1. PEG-INTRON [Suspect]
     Indication: HEPATITIS C
     Dosage: 0.5 ML WEEKLY SUBCUTANEOUS
     Route: 058
     Dates: start: 20030310, end: 20031010
  2. REBETOL [Suspect]
     Dosage: 1200 MG DAILY ORAL
     Route: 048
     Dates: start: 20030310, end: 20031010

REACTIONS (9)
  - ALOPECIA [None]
  - ANAEMIA [None]
  - CHILLS [None]
  - DEPRESSION [None]
  - DRUG INEFFECTIVE [None]
  - INFLUENZA LIKE ILLNESS [None]
  - INSOMNIA [None]
  - PYREXIA [None]
  - WEIGHT DECREASED [None]
